FAERS Safety Report 7335034-0 (Version None)
Quarter: 2011Q1

REPORT INFORMATION
  Report Type: 
  Country: None (occurrence: None)
  Receive Date: 20110302
  Receipt Date: 20110302
  Transmission Date: 20110831
  Serious: Yes (Hospitalization)
  Sender: FDA-Public Use
  Company Number: None

PATIENT
  Sex: Female
  Weight: 69.8539 kg

DRUGS (3)
  1. LORTAB [Suspect]
     Indication: LOWER LIMB FRACTURE
     Dosage: 10MG AS NEEDED LAST 3YRS.
  2. LORTAB [Suspect]
     Indication: EXOSTOSIS
     Dosage: 10MG AS NEEDED LAST 3YRS.
  3. NEURONTIN [Suspect]
     Indication: ARTHRITIS
     Dosage: 800 MG 3 TIMES A DAY 3 TIMES A DAY

REACTIONS (5)
  - HEADACHE [None]
  - BLADDER DISORDER [None]
  - RENAL DISORDER [None]
  - ARRHYTHMIA [None]
  - CONFUSIONAL STATE [None]
